FAERS Safety Report 24306560 (Version 1)
Quarter: 2024Q3

REPORT INFORMATION
  Report Type: Spontaneous
  Country: JP (occurrence: JP)
  Receive Date: 20240911
  Receipt Date: 20240911
  Transmission Date: 20241017
  Serious: Yes (Death)
  Sender: NOVARTIS
  Company Number: JP-002147023-NVSJ2024JP010721

PATIENT

DRUGS (1)
  1. KYMRIAH [Suspect]
     Active Substance: TISAGENLECLEUCEL
     Indication: Follicular lymphoma recurrent
     Dosage: UNK
     Route: 041

REACTIONS (2)
  - Follicular lymphoma recurrent [Fatal]
  - Malignant neoplasm progression [Fatal]
